FAERS Safety Report 4818884-1 (Version None)
Quarter: 2005Q4

REPORT INFORMATION
  Report Type: 
  Country: None (occurrence: None)
  Receive Date: 20051103
  Receipt Date: 20051013
  Transmission Date: 20060501
  Serious: Yes (Life-Threatening, Hospitalization, Disabling)
  Sender: FDA-Public Use
  Company Number: US-BOEHRINGER INGELHEIM PHARMACEUTICALS, INC.-2005-BP-18364BP

PATIENT
  Age: 57 Year
  Sex: Male
  Weight: 68.82 kg

DRUGS (5)
  1. APTIVUS/RITONAVIR CAPSULES [Suspect]
     Indication: HIV INFECTION
     Route: 048
     Dates: start: 20050812, end: 20050911
  2. TENOFOVIR [Concomitant]
     Dates: start: 20050509, end: 20050911
  3. ENFUVIRTIDE [Concomitant]
     Dates: start: 20050509, end: 20050911
  4. VALSARTAN [Concomitant]
     Dates: start: 20050712, end: 20050911
  5. FOSINOPRIL SODIUM [Concomitant]
     Dates: start: 20050712, end: 20050911

REACTIONS (3)
  - CARDIAC ARREST [None]
  - DIALYSIS [None]
  - RESPIRATORY FAILURE [None]
